FAERS Safety Report 22836253 (Version 5)
Quarter: 2025Q2

REPORT INFORMATION
  Report Type: Report from Study
  Country: US (occurrence: US)
  Receive Date: 20230818
  Receipt Date: 20250414
  Transmission Date: 20250716
  Serious: Yes (Disabling)
  Sender: ABBVIE
  Company Number: US-ABBVIE-5370748

PATIENT
  Age: 64 Year
  Sex: Female

DRUGS (5)
  1. RINVOQ [Suspect]
     Active Substance: UPADACITINIB
     Indication: Rheumatoid arthritis
     Route: 048
     Dates: start: 20170101
  2. RINVOQ [Suspect]
     Active Substance: UPADACITINIB
     Indication: Rheumatoid arthritis
     Route: 048
  3. RINVOQ [Suspect]
     Active Substance: UPADACITINIB
     Indication: Rheumatoid arthritis
     Route: 048
     Dates: start: 202206
  4. ALEVE [Concomitant]
     Active Substance: NAPROXEN SODIUM
     Indication: Product used for unknown indication
  5. HYDROCODONE BITARTRATE [Concomitant]
     Active Substance: HYDROCODONE BITARTRATE
     Indication: Product used for unknown indication

REACTIONS (11)
  - Disability [Unknown]
  - Gait inability [Unknown]
  - Unevaluable event [Unknown]
  - Pain in extremity [Unknown]
  - Arthralgia [Unknown]
  - Neck pain [Unknown]
  - Mobility decreased [Unknown]
  - Pain [Unknown]
  - Knee deformity [Unknown]
  - Joint swelling [Unknown]
  - Finger deformity [Unknown]

NARRATIVE: CASE EVENT DATE: 20230705
